FAERS Safety Report 18172284 (Version 1)
Quarter: 2020Q3

REPORT INFORMATION
  Report Type: Spontaneous
  Country: CN (occurrence: CN)
  Receive Date: 20200819
  Receipt Date: 20200819
  Transmission Date: 20201103
  Serious: Yes (Other)
  Sender: FDA-Public Use
  Company Number: CN-TOPROL ACQUISITION LLC-2020-TOP-000319

PATIENT
  Age: 68 Year
  Sex: Male

DRUGS (6)
  1. METOPROLOL SUCCINATE. [Suspect]
     Active Substance: METOPROLOL SUCCINATE
     Indication: STENT PLACEMENT
     Dosage: 47.5 MG, QD
     Route: 048
  2. METOPROLOL SUCCINATE. [Suspect]
     Active Substance: METOPROLOL SUCCINATE
     Indication: ARTERIAL THERAPEUTIC PROCEDURE
     Dosage: 159 DF, SINGLE
     Route: 048
     Dates: end: 20200722
  3. ALPRAZOLAM. [Concomitant]
     Active Substance: ALPRAZOLAM
     Indication: SLEEP DISORDER
  4. ANTIHYPERTENSIVES [Concomitant]
     Active Substance: UNSPECIFIED INGREDIENT
     Dosage: UNK
     Dates: end: 20200722
  5. METOPROLOL SUCCINATE. [Suspect]
     Active Substance: METOPROLOL SUCCINATE
     Indication: LEUKAEMIA
  6. ASPIRIN                            /00002701/ [Concomitant]
     Active Substance: ASPIRIN

REACTIONS (8)
  - Intentional overdose [Unknown]
  - Ageusia [Recovering/Resolving]
  - Agitation [Unknown]
  - Suicide attempt [Unknown]
  - Gait disturbance [Recovering/Resolving]
  - Dry mouth [Recovering/Resolving]
  - Palpitations [Unknown]
  - Toxicity to various agents [Unknown]

NARRATIVE: CASE EVENT DATE: 20200620
